FAERS Safety Report 20590386 (Version 1)
Quarter: 2022Q1

REPORT INFORMATION
  Report Type: Spontaneous
  Country: US (occurrence: None)
  Receive Date: 20220313
  Receipt Date: 20220313
  Transmission Date: 20220423
  Serious: Yes (unspecified)
  Sender: FDA-Public Use
  Company Number: None

PATIENT
  Age: 29 Year
  Sex: Female
  Weight: 92.25 kg

DRUGS (6)
  1. CLONAZEPAM [Suspect]
     Active Substance: CLONAZEPAM
     Indication: Bipolar disorder
     Dosage: FREQUENCY : AT BEDTIME;?
     Route: 048
  2. SPIRONOLACTONE [Suspect]
     Active Substance: SPIRONOLACTONE
  3. ESZOPICLONE [Suspect]
     Active Substance: ESZOPICLONE
  4. LAMOTRIGINE [Suspect]
     Active Substance: LAMOTRIGINE
  5. QUETIAPINE [Suspect]
     Active Substance: QUETIAPINE
  6. DOXEPIN [Suspect]
     Active Substance: DOXEPIN

REACTIONS (7)
  - Asthenia [None]
  - Somnolence [None]
  - Dizziness [None]
  - Irregular breathing [None]
  - Heart rate irregular [None]
  - Speech disorder [None]
  - Dysphonia [None]

NARRATIVE: CASE EVENT DATE: 20220313
